FAERS Safety Report 19874033 (Version 4)
Quarter: 2021Q4

REPORT INFORMATION
  Report Type: Report from Study
  Country: US (occurrence: US)
  Receive Date: 20210923
  Receipt Date: 20211225
  Transmission Date: 20220303
  Serious: Yes (Hospitalization, Other)
  Sender: FDA-Public Use
  Company Number: US-TAKEDA-2021TUS004055

PATIENT
  Age: 2 Year
  Sex: Female

DRUGS (9)
  1. TEDUGLUTIDE [Suspect]
     Active Substance: TEDUGLUTIDE
     Indication: Short-bowel syndrome
     Dosage: 0.64 MILLIGRAM, QD
     Route: 058
     Dates: start: 20201221
  2. TEDUGLUTIDE [Suspect]
     Active Substance: TEDUGLUTIDE
     Indication: Short-bowel syndrome
     Dosage: 0.64 MILLIGRAM, QD
     Route: 058
     Dates: start: 20201221
  3. TEDUGLUTIDE [Suspect]
     Active Substance: TEDUGLUTIDE
     Indication: Short-bowel syndrome
     Dosage: 0.64 MILLIGRAM, QD
     Route: 058
     Dates: start: 20201221
  4. TEDUGLUTIDE [Suspect]
     Active Substance: TEDUGLUTIDE
     Indication: Short-bowel syndrome
     Dosage: 0.64 MILLIGRAM, QD
     Route: 058
     Dates: start: 20201221
  5. TEDUGLUTIDE [Suspect]
     Active Substance: TEDUGLUTIDE
     Dosage: 0.73 MILLIGRAM, QD
     Route: 058
     Dates: start: 20211221
  6. TEDUGLUTIDE [Suspect]
     Active Substance: TEDUGLUTIDE
     Dosage: 0.73 MILLIGRAM, QD
     Route: 058
     Dates: start: 20211221
  7. TEDUGLUTIDE [Suspect]
     Active Substance: TEDUGLUTIDE
     Dosage: 0.73 MILLIGRAM, QD
     Route: 058
     Dates: start: 20211221
  8. TEDUGLUTIDE [Suspect]
     Active Substance: TEDUGLUTIDE
     Dosage: 0.73 MILLIGRAM, QD
     Route: 058
     Dates: start: 20211221
  9. FLUCONAZOLE [Concomitant]
     Active Substance: FLUCONAZOLE
     Indication: Product used for unknown indication
     Route: 065

REACTIONS (18)
  - Viral upper respiratory tract infection [Unknown]
  - Catheter management [Unknown]
  - Pyrexia [Unknown]
  - Seizure [Unknown]
  - Frequent bowel movements [Unknown]
  - Vulvovaginal rash [Unknown]
  - Fungal test positive [Unknown]
  - Onychomadesis [Not Recovered/Not Resolved]
  - Nail discolouration [Unknown]
  - Nasal congestion [Unknown]
  - Urticaria [Unknown]
  - Cough [Unknown]
  - Flatulence [Unknown]
  - Vomiting [Recovered/Resolved]
  - Faecal volume increased [Recovered/Resolved]
  - Therapy interrupted [Recovered/Resolved]
  - Product dose omission issue [Unknown]
  - Product distribution issue [Unknown]

NARRATIVE: CASE EVENT DATE: 20201221
